FAERS Safety Report 10245089 (Version 1)
Quarter: 2014Q2

REPORT INFORMATION
  Report Type: Spontaneous
  Country: US (occurrence: US)
  Receive Date: 20140618
  Receipt Date: 20140618
  Transmission Date: 20141212
  Serious: No
  Sender: FDA-Public Use
  Company Number: US-GALDERMA-US14001168

PATIENT
  Age: 63 Year
  Sex: Female

DRUGS (10)
  1. MIRVASO (BRIMONIDINE) TOPICAL GEL, 0.33% [Suspect]
     Indication: ROSACEA
     Dosage: 0.33%
     Route: 061
     Dates: start: 20131212, end: 201402
  2. FINACEA (AZELAIC ACID) GEL, 15% [Concomitant]
     Indication: ROSACEA
     Dosage: 15%
     Route: 061
  3. SIMVASTATIN [Concomitant]
     Indication: BLOOD CHOLESTEROL
     Dosage: 80 MG
     Route: 048
  4. LOSARTAN-HCTZ [Concomitant]
     Indication: HYPERTENSION
     Dosage: 100-12.5 MG
     Route: 048
  5. OMEPRAZOLE [Concomitant]
     Indication: GASTROOESOPHAGEAL REFLUX DISEASE
     Dosage: 40 MG
     Route: 048
  6. KRILL OIL [Concomitant]
     Dosage: 300 MG
     Route: 048
  7. MULTIVITAMIN [Concomitant]
     Route: 048
  8. GLUCOSAMINE CHONDROITIN [Concomitant]
     Route: 048
  9. SIMPLE REPLENISHING RICH MOISTURIZER [Concomitant]
     Route: 061
  10. AVEENO ULTRA CALMING DAILY MOISTURIZER [Concomitant]
     Route: 061

REACTIONS (5)
  - Condition aggravated [Recovered/Resolved]
  - Erythema [Recovered/Resolved]
  - Dermatitis [Recovered/Resolved]
  - Erythema [Recovered/Resolved]
  - Inappropriate schedule of drug administration [Recovered/Resolved]
